FAERS Safety Report 22051696 (Version 2)
Quarter: 2023Q1

REPORT INFORMATION
  Report Type: Spontaneous
  Country: HR (occurrence: HR)
  Receive Date: 20230302
  Receipt Date: 20230308
  Transmission Date: 20230418
  Serious: Yes (Hospitalization)
  Sender: FDA-Public Use
  Company Number: HR-BAYER-2023A026049

PATIENT
  Age: 71 Year
  Sex: Male
  Weight: 97 kg

DRUGS (3)
  1. RIVAROXABAN [Suspect]
     Active Substance: RIVAROXABAN
     Indication: Deep vein thrombosis
     Dosage: UNK
     Route: 048
     Dates: start: 202104, end: 202104
  2. RIVAROXABAN [Suspect]
     Active Substance: RIVAROXABAN
     Dosage: UNK
     Route: 048
     Dates: start: 20210511, end: 202106
  3. IMBRUVICA [Concomitant]
     Active Substance: IBRUTINIB
     Indication: Lymphocytic lymphoma
     Dosage: 420 MG
     Dates: start: 202104, end: 20210726

REACTIONS (5)
  - Haemothorax [Unknown]
  - Dyspnoea [Unknown]
  - Deep vein thrombosis [Unknown]
  - Petechiae [Unknown]
  - Flatulence [Unknown]

NARRATIVE: CASE EVENT DATE: 20210426
